FAERS Safety Report 23561556 (Version 3)
Quarter: 2025Q1

REPORT INFORMATION
  Report Type: Spontaneous
  Country: US (occurrence: US)
  Receive Date: 20240225
  Receipt Date: 20250219
  Transmission Date: 20250409
  Serious: No
  Sender: JOHNSON AND JOHNSON
  Company Number: US-VIIV HEALTHCARE LIMITED-US2024021142

PATIENT
  Age: 34 Year
  Sex: Female
  Weight: 79 kg

DRUGS (23)
  1. RILPIVIRINE [Suspect]
     Active Substance: RILPIVIRINE
     Indication: HIV infection
     Dosage: UNK UNK, MO, CABOTEGRAVIR-RILPIVIRINE 400 MG- 600 MG/2 ML
     Route: 065
     Dates: start: 20240209
  2. RILPIVIRINE [Suspect]
     Active Substance: RILPIVIRINE
     Dosage: UNK UNK, Q2M
     Route: 065
  3. CABOTEGRAVIR [Suspect]
     Active Substance: CABOTEGRAVIR
     Indication: HIV infection
     Dosage: UNK UNK, MO, CABOTEGRAVIR-RILPIVIRINE 400 MG- 600 MG/2 ML
     Route: 065
     Dates: start: 20240209
  4. CABOTEGRAVIR [Suspect]
     Active Substance: CABOTEGRAVIR
     Dosage: UNK UNK, Q2M
     Route: 065
  5. ACYCLOVIR [Suspect]
     Active Substance: ACYCLOVIR
     Indication: Herpes simplex
     Dosage: 400 MG, TID
     Dates: start: 20240814, end: 20241003
  6. METRONIDAZOLE [Suspect]
     Active Substance: METRONIDAZOLE
     Indication: Product used for unknown indication
     Dosage: 500 MG, BID
     Dates: start: 20240614, end: 20240621
  7. VITAMIN B6 [Suspect]
     Active Substance: PYRIDOXINE HYDROCHLORIDE
     Indication: Morning sickness
     Dates: start: 20240405, end: 20240920
  8. METOCLOPRAMIDE [Suspect]
     Active Substance: METOCLOPRAMIDE
     Indication: Morning sickness
     Dates: start: 20240405, end: 20240920
  9. DOXYLAMINE [Suspect]
     Active Substance: DOXYLAMINE
     Indication: Morning sickness
     Dates: start: 20240405, end: 20240920
  10. MAGNESIUM OXIDE [Suspect]
     Active Substance: MAGNESIUM OXIDE
     Indication: Headache
     Dates: start: 20240405, end: 20240920
  11. BENZONATATE [Suspect]
     Active Substance: BENZONATATE
     Indication: Upper respiratory tract infection
     Dosage: 200 MG, TID
     Dates: start: 20241207
  12. ASPIRIN [Suspect]
     Active Substance: ASPIRIN
     Indication: High risk pregnancy
     Dosage: 2 DF, QD, 81 MG EC
     Dates: start: 20240531
  13. CLOTRIMAZOLE [Suspect]
     Active Substance: CLOTRIMAZOLE
     Indication: Tinea infection
     Dates: start: 20240814, end: 20240920
  14. IRON [Suspect]
     Active Substance: IRON
     Indication: Vitamin supplementation
     Dates: start: 20240206, end: 20240920
  15. DIETARY SUPPLEMENT [Suspect]
     Active Substance: DIETARY SUPPLEMENT
     Indication: Vitamin supplementation
     Dates: start: 20240206, end: 20240920
  16. FISH OIL [Suspect]
     Active Substance: FISH OIL
     Indication: Vitamin supplementation
     Dates: start: 20240206, end: 20240920
  17. FISH OIL [Suspect]
     Active Substance: FISH OIL
     Indication: Vitamin supplementation
     Dates: start: 20240206, end: 20240920
  18. FAMOTIDINE [Suspect]
     Active Substance: FAMOTIDINE
     Indication: Oropharyngeal pain
     Dates: start: 20231207
  19. FAMOTIDINE [Suspect]
     Active Substance: FAMOTIDINE
     Indication: Upper respiratory tract infection
  20. IPRATROPIUM [Suspect]
     Active Substance: IPRATROPIUM
     Indication: Upper respiratory tract infection
     Dosage: 2 PUFF(S), BID, 21 MCG MCG (0.03%)
     Dates: start: 20231207
  21. ALBUTEROL [Suspect]
     Active Substance: ALBUTEROL
     Indication: Wheezing
     Dates: start: 20220315
  22. ALBUTEROL [Suspect]
     Active Substance: ALBUTEROL
     Indication: Dyspnoea
  23. ALBUTEROL [Suspect]
     Active Substance: ALBUTEROL
     Indication: Asthma

REACTIONS (2)
  - Exposure during pregnancy [Recovered/Resolved]
  - Injection site pain [Recovered/Resolved]
